FAERS Safety Report 15482587 (Version 2)
Quarter: 2018Q4

REPORT INFORMATION
  Report Type: Spontaneous
  Country: BR (occurrence: BR)
  Receive Date: 20181010
  Receipt Date: 20181029
  Transmission Date: 20190205
  Serious: Yes (Other)
  Sender: FDA-Public Use
  Company Number: BR-PFIZER INC-2018394872

PATIENT
  Sex: Female

DRUGS (1)
  1. DEPO-PROVERA [Suspect]
     Active Substance: MEDROXYPROGESTERONE ACETATE
     Indication: ENDOMETRIOSIS
     Dosage: 1 AMPOULE, EVERY 3 MONTHS
     Route: 030

REACTIONS (5)
  - Product use in unapproved indication [Unknown]
  - Injection site pain [Unknown]
  - Bursitis [Unknown]
  - Injection site haemorrhage [Unknown]
  - Injection site joint inflammation [Unknown]
